FAERS Safety Report 20452014 (Version 1)
Quarter: 2022Q1

REPORT INFORMATION
  Report Type: Report from Study
  Country: BR (occurrence: BR)
  Receive Date: 20220209
  Receipt Date: 20220209
  Transmission Date: 20220423
  Serious: Yes (Death)
  Sender: FDA-Public Use
  Company Number: BR-ABBVIE-22K-020-4272277-00

PATIENT
  Sex: Male
  Weight: 71 kg

DRUGS (1)
  1. RINVOQ [Suspect]
     Active Substance: UPADACITINIB
     Indication: Rheumatoid arthritis
     Route: 048
     Dates: start: 20210822

REACTIONS (4)
  - Rheumatoid arthritis [Fatal]
  - Blood pressure abnormal [Fatal]
  - Infection [Fatal]
  - Fungal infection [Unknown]

NARRATIVE: CASE EVENT DATE: 20210101
